FAERS Safety Report 5528069-1 (Version None)
Quarter: 2007Q4

REPORT INFORMATION
  Report Type: 
  Country: None (occurrence: None)
  Receive Date: 20071121
  Receipt Date: 20071109
  Transmission Date: 20080405
  Serious: Yes (Life-Threatening)
  Sender: FDA-Public Use
  Company Number: 2007P1000701

PATIENT
  Age: 0 Year
  Sex: Female

DRUGS (1)
  1. BUSULFAN [Suspect]
     Indication: STEM CELL TRANSPLANT
     Dosage: 6.6 MG;QID;IV
     Route: 042
     Dates: start: 20070810, end: 20070814

REACTIONS (17)
  - ASCITES [None]
  - CONTINUOUS HAEMODIAFILTRATION [None]
  - DYSPNOEA [None]
  - GALLBLADDER ENLARGEMENT [None]
  - HAEMATEMESIS [None]
  - HEPATIC FAILURE [None]
  - HEPATOMEGALY [None]
  - HYPOPNOEA [None]
  - MULTI-ORGAN FAILURE [None]
  - NEUTROPHIL COUNT DECREASED [None]
  - OXYGEN SATURATION DECREASED [None]
  - PULMONARY ALVEOLAR HAEMORRHAGE [None]
  - RENAL FAILURE [None]
  - RESPIRATORY FAILURE [None]
  - VENOOCCLUSIVE DISEASE [None]
  - VENOOCCLUSIVE LIVER DISEASE [None]
  - WEIGHT INCREASED [None]
